FAERS Safety Report 8506281-7 (Version None)
Quarter: 2012Q3

REPORT INFORMATION
  Report Type: 
  Country: None (occurrence: None)
  Receive Date: 20120706
  Receipt Date: 20120706
  Transmission Date: 20120928
  Serious: Yes (Hospitalization)
  Sender: FDA-Public Use
  Company Number: None

PATIENT
  Age: 72 Year
  Sex: Female
  Weight: 77.1115 kg

DRUGS (2)
  1. COLD CALM COLDCAM (BOIRON) [Suspect]
     Indication: NASOPHARYNGITIS
     Dosage: 1 TABLET AS DIRECTED
  2. DELSYM [Suspect]
     Indication: COUGH
     Dosage: 1 DOSE

REACTIONS (1)
  - HALLUCINATION [None]
